FAERS Safety Report 19183244 (Version 1)
Quarter: 2021Q2

REPORT INFORMATION
  Report Type: Spontaneous
  Country: FR (occurrence: FR)
  Receive Date: 20210427
  Receipt Date: 20210427
  Transmission Date: 20210717
  Serious: Yes (Other)
  Sender: FDA-Public Use
  Company Number: FR-AUROBINDO-AUR-APL-2021-016667

PATIENT
  Age: 73 Year
  Sex: Male

DRUGS (4)
  1. LAMPRENE [Concomitant]
     Active Substance: CLOFAZIMINE
     Indication: PRODUCT USED FOR UNKNOWN INDICATION
     Dosage: 1 DOSAGE FORM, ONCE A DAY
     Route: 048
     Dates: start: 202006, end: 20201228
  2. ARIKAYCE LIPOSOMAL [Concomitant]
     Indication: PRODUCT USED FOR UNKNOWN INDICATION
     Dosage: 70 MILLIGRAM, ONCE A DAY
     Route: 055
     Dates: start: 202007, end: 20201228
  3. TOVIAZ [Concomitant]
     Active Substance: FESOTERODINE FUMARATE
     Indication: PRODUCT USED FOR UNKNOWN INDICATION
     Dosage: 1 DOSAGE FORM, ONCE A DAY
     Route: 048
  4. LINEZOLID. [Suspect]
     Active Substance: LINEZOLID
     Indication: MYCOBACTERIUM ABSCESSUS INFECTION
     Dosage: 1.2GR / DAY UNTIL 11/25/20 THEN 600MG / DAY
     Route: 048
     Dates: start: 20201116, end: 20201228

REACTIONS (2)
  - Eosinophilia [Recovered/Resolved]
  - Hepatitis acute [Recovered/Resolved]

NARRATIVE: CASE EVENT DATE: 20201020
